FAERS Safety Report 6121738-4 (Version None)
Quarter: 2009Q1

REPORT INFORMATION
  Report Type: 
  Country: None (occurrence: None)
  Receive Date: 20090317
  Receipt Date: 20090306
  Transmission Date: 20090719
  Serious: Yes (Hospitalization)
  Sender: FDA-Public Use
  Company Number: AR-ELI_LILLY_AND_COMPANY-AR200903002099

PATIENT
  Age: 23 Year
  Sex: Female

DRUGS (3)
  1. ZYPREXA [Suspect]
     Dosage: 5 MG, DAILY (1/D)
     Route: 065
     Dates: start: 20060101, end: 20090201
  2. ZYPREXA [Suspect]
     Dosage: 10 MG, UNKNOWN
     Route: 065
     Dates: start: 20090101
  3. QUETIAPINE FUMARATE [Concomitant]
     Dosage: UNK, UNKNOWN
     Route: 065

REACTIONS (2)
  - DISORIENTATION [None]
  - TREMOR [None]
